FAERS Safety Report 6057951-4 (Version None)
Quarter: 2009Q1

REPORT INFORMATION
  Report Type: 
  Country: None (occurrence: None)
  Receive Date: 20090129
  Receipt Date: 20090123
  Transmission Date: 20090719
  Serious: Yes (Other)
  Sender: FDA-Public Use
  Company Number: US-B.I. PHARMACEUTICALS,INC./RIDGEFIELD-2009-BP-00931BP

PATIENT
  Sex: Female

DRUGS (1)
  1. DULCOLAX [Suspect]

REACTIONS (4)
  - ANXIETY [None]
  - CHEST PAIN [None]
  - DIZZINESS [None]
  - FEELING ABNORMAL [None]
